FAERS Safety Report 19876666 (Version 4)
Quarter: 2022Q1

REPORT INFORMATION
  Report Type: Report from Study
  Country: BR (occurrence: BR)
  Receive Date: 20210923
  Receipt Date: 20220124
  Transmission Date: 20220424
  Serious: Yes (Death, Life-Threatening, Hospitalization, Disabling)
  Sender: FDA-Public Use
  Company Number: NVSC2021BR132274

PATIENT
  Age: 59 Year
  Sex: Female
  Weight: 66.7 kg

DRUGS (1)
  1. RIBOCICLIB [Suspect]
     Active Substance: RIBOCICLIB
     Indication: HER2 negative breast cancer
     Dosage: 400 MG
     Route: 048
     Dates: start: 20210329, end: 20210610

REACTIONS (3)
  - Acute myocardial infarction [Fatal]
  - Eye pain [Recovered/Resolved]
  - Vitreous haemorrhage [Not Recovered/Not Resolved]

NARRATIVE: CASE EVENT DATE: 20210610
